FAERS Safety Report 20237236 (Version 1)
Quarter: 2021Q4

REPORT INFORMATION
  Report Type: Spontaneous
  Country: UA (occurrence: UA)
  Receive Date: 20211228
  Receipt Date: 20211228
  Transmission Date: 20220303
  Serious: Yes (Death, Other)
  Sender: FDA-Public Use
  Company Number: UA-009507513-2112UKR006895

PATIENT
  Age: 7 Year
  Sex: Female

DRUGS (7)
  1. NOXAFIL [Suspect]
     Active Substance: POSACONAZOLE
     Indication: Mucormycosis
  2. CANCIDAS [Suspect]
     Active Substance: CASPOFUNGIN ACETATE
     Indication: Mucormycosis
  3. VORICONAZOLE [Suspect]
     Active Substance: VORICONAZOLE
     Indication: Rhinocerebral mucormycosis
  4. SARGRAMOSTIM [Suspect]
     Active Substance: SARGRAMOSTIM
     Indication: Mucormycosis
  5. MICAFUNGIN [Suspect]
     Active Substance: MICAFUNGIN
  6. AMPHOTERICIN B [Suspect]
     Active Substance: AMPHOTERICIN B
     Indication: Mucormycosis
     Dosage: 5 MILLIGRAM/KILOGRAM
  7. AMPHOTERICIN B [Suspect]
     Active Substance: AMPHOTERICIN B
     Dosage: 10 MILLIGRAM/KILOGRAM

REACTIONS (12)
  - Death [Fatal]
  - Blindness [Unknown]
  - Depressed level of consciousness [Unknown]
  - Typhoid fever [Unknown]
  - Megacolon [Unknown]
  - Ophthalmic artery thrombosis [Unknown]
  - Seizure [Unknown]
  - Febrile neutropenia [Unknown]
  - Gastrointestinal mucormycosis [Unknown]
  - Rhinocerebral mucormycosis [Not Recovered/Not Resolved]
  - Pancreatitis acute [Unknown]
  - Drug ineffective for unapproved indication [Unknown]
